FAERS Safety Report 18306758 (Version 1)
Quarter: 2020Q3

REPORT INFORMATION
  Report Type: Spontaneous
  Country: JP (occurrence: JP)
  Receive Date: 20200924
  Receipt Date: 20200924
  Transmission Date: 20201103
  Serious: Yes (Other)
  Sender: FDA-Public Use
  Company Number: JP-SUN PHARMACEUTICAL INDUSTRIES LTD-2020R1-261797

PATIENT
  Sex: Female

DRUGS (9)
  1. AMPICILLIN/SULBACTAM [Suspect]
     Active Substance: AMPICILLIN SODIUM\SULBACTAM SODIUM
     Indication: STREPTOCOCCAL INFECTION
     Dosage: 120 MILLIGRAM/KILOGRAM, DAILY
     Route: 065
  2. AMPICILLIN [Concomitant]
     Active Substance: AMPICILLIN
     Indication: PSEUDOMONAS INFECTION
  3. AMPICILLIN [Concomitant]
     Active Substance: AMPICILLIN
     Indication: STREPTOCOCCAL INFECTION
     Dosage: 100 MILLIGRAM/KILOGRAM, DAILY
     Route: 065
  4. VALPROIC ACID. [Concomitant]
     Active Substance: VALPROIC ACID
     Indication: PRODUCT USED FOR UNKNOWN INDICATION
     Dosage: UNK
     Route: 065
  5. CLARITHROMYCIN. [Suspect]
     Active Substance: CLARITHROMYCIN
     Indication: PRODUCT USED FOR UNKNOWN INDICATION
     Dosage: 5 MILLIGRAM/KILOGRAM, DAILY
     Route: 065
  6. CEFOZOPRAN [Suspect]
     Active Substance: CEFOZOPRAN
     Indication: ACINETOBACTER INFECTION
  7. CEFOZOPRAN [Suspect]
     Active Substance: CEFOZOPRAN
     Indication: PSEUDOMONAS INFECTION
  8. CEFOZOPRAN [Suspect]
     Active Substance: CEFOZOPRAN
     Indication: STREPTOCOCCAL INFECTION
     Dosage: 40 MILLIGRAM/KILOGRAM, DAILY
     Route: 065
  9. AMPICILLIN [Concomitant]
     Active Substance: AMPICILLIN
     Indication: ACINETOBACTER INFECTION

REACTIONS (1)
  - Drug resistance [Unknown]
